FAERS Safety Report 11914844 (Version 2)
Quarter: 2016Q1

REPORT INFORMATION
  Report Type: Report from Study
  Country: DE (occurrence: DE)
  Receive Date: 20160113
  Receipt Date: 20160115
  Transmission Date: 20160526
  Serious: Yes (Death)
  Sender: FDA-Public Use
  Company Number: DE-ABBVIE-16P-062-1535701-00

PATIENT
  Sex: Female

DRUGS (1)
  1. DUODOPA [Suspect]
     Active Substance: CARBIDOPA\LEVODOPA
     Indication: PARKINSON^S DISEASE
     Dosage: MD 0ML, CRD 2.1ML/H, CRN 1.7ML/H, ED 2ML
     Route: 050
     Dates: start: 20150116

REACTIONS (4)
  - General physical health deterioration [Fatal]
  - Urosepsis [Fatal]
  - Pneumonia [Fatal]
  - Condition aggravated [Fatal]
